FAERS Safety Report 4787504-7 (Version None)
Quarter: 2005Q4

REPORT INFORMATION
  Report Type: 
  Country: None (occurrence: None)
  Receive Date: 20051003
  Receipt Date: 20050927
  Transmission Date: 20060501
  Serious: Yes (Other)
  Sender: FDA-Public Use
  Company Number: 200513106GDS

PATIENT
  Age: 66 Year
  Sex: Female

DRUGS (10)
  1. CIPROFLOXACIN [Suspect]
     Indication: BACTERIAL INFECTION
     Dosage: 500 MG, TOTAL DAILY, ORAL
     Route: 048
  2. PREDNISOLONE [Concomitant]
  3. CELLCEPT [Concomitant]
  4. HYDROCHLOROTHIAZIDE [Concomitant]
  5. ETALPHA [Concomitant]
  6. LIPITOR [Concomitant]
  7. LOSEC [Concomitant]
  8. VITAMIN B COMPLEX CAP [Concomitant]
  9. NORMISON [Concomitant]
  10. SEROXAT [Concomitant]

REACTIONS (2)
  - FOOT FRACTURE [None]
  - PATHOLOGICAL FRACTURE [None]
